FAERS Safety Report 24286360 (Version 1)
Quarter: 2024Q3

REPORT INFORMATION
  Report Type: Spontaneous
  Country: US (occurrence: US)
  Receive Date: 20240905
  Receipt Date: 20240905
  Transmission Date: 20241017
  Serious: No
  Sender: ULTRAGENYX PHARMACEUTICAL
  Company Number: US-ULTRAGENYX PHARMACEUTICAL INC.-US-UGX-24-00543

PATIENT
  Sex: Female
  Weight: 21.77 kg

DRUGS (4)
  1. DOJOLVI [Suspect]
     Active Substance: TRIHEPTANOIN
     Indication: Pyruvate carboxylase deficiency
     Dosage: 9 MILLILITER, QID
     Route: 048
  2. FLONASE ALLERGY RELIEF [Concomitant]
     Active Substance: FLUTICASONE PROPIONATE
     Indication: Product used for unknown indication
     Dosage: UNK
  3. LEVOCARNITINE [Concomitant]
     Active Substance: LEVOCARNITINE
     Indication: Product used for unknown indication
     Dosage: 250 MILLIGRAM
  4. VITAMINS [Concomitant]
     Active Substance: VITAMINS
     Indication: Product used for unknown indication
     Dosage: UNK

REACTIONS (1)
  - Adenovirus infection [Unknown]
